FAERS Safety Report 16675821 (Version 2)
Quarter: 2020Q3

REPORT INFORMATION
  Report Type: Report from Study
  Country: None (occurrence: CA)
  Receive Date: 20190806
  Receipt Date: 20200808
  Transmission Date: 20201102
  Serious: Yes (Hospitalization, Other)
  Sender: FDA-Public Use
  Company Number: CA-ABBVIE-19K-028-2879066-00

PATIENT
  Sex: Male

DRUGS (1)
  1. HUMIRA [Suspect]
     Active Substance: ADALIMUMAB
     Indication: ANKYLOSING SPONDYLITIS
     Route: 058
     Dates: start: 20130916, end: 201901

REACTIONS (8)
  - Intestinal anastomosis [Unknown]
  - Dehydration [Unknown]
  - Intentional product misuse [Unknown]
  - Pain [Unknown]
  - Weight decreased [Unknown]
  - Injection site pain [Unknown]
  - Neuroendocrine tumour [Unknown]
  - Fat tissue decreased [Unknown]

NARRATIVE: CASE EVENT DATE: 2019
